FAERS Safety Report 5857713-4 (Version None)
Quarter: 2008Q3

REPORT INFORMATION
  Report Type: 
  Country: None (occurrence: None)
  Receive Date: 20080822
  Receipt Date: 20080815
  Transmission Date: 20090109
  Serious: Yes (Life-Threatening)
  Sender: FDA-Public Use
  Company Number: 003993

PATIENT
  Age: 5 Year
  Sex: Male

DRUGS (1)
  1. BUSULFEX [Suspect]
     Indication: STEM CELL TRANSPLANT
     Dosage: 14 ML, INTRAVENOUS
     Route: 042
     Dates: start: 20080721, end: 20080724

REACTIONS (5)
  - CARDIAC ARREST [None]
  - INTERSTITIAL LUNG DISEASE [None]
  - PULMONARY HAEMORRHAGE [None]
  - RESPIRATORY ARREST [None]
  - RESPIRATORY DISTRESS [None]
